FAERS Safety Report 8334296-0 (Version None)
Quarter: 2012Q2

REPORT INFORMATION
  Report Type: 
  Country: None (occurrence: None)
  Receive Date: 20120503
  Receipt Date: 20120427
  Transmission Date: 20120825
  Serious: Yes (Hospitalization, Other)
  Sender: FDA-Public Use
  Company Number: US-PFIZER INC-2012105747

PATIENT
  Sex: Female
  Weight: 86 kg

DRUGS (4)
  1. NORVASC [Suspect]
     Indication: HYPERTENSION
     Dosage: 10 MG, 1X/DAY
     Route: 048
     Dates: end: 20120301
  2. LIPITOR [Suspect]
     Dosage: 80 MG, 1X/DAY
     Route: 048
  3. LIPITOR [Suspect]
     Indication: BLOOD CHOLESTEROL INCREASED
     Dosage: 40 MG, 1X/DAY
     Route: 048
  4. XANAX [Concomitant]
     Indication: ANXIETY
     Dosage: UNK

REACTIONS (8)
  - NEPHROLITHIASIS [None]
  - HEADACHE [None]
  - BODY HEIGHT DECREASED [None]
  - KIDNEY INFECTION [None]
  - HYPERTENSION [None]
  - ARTERIAL DISORDER [None]
  - BLOOD GLUCOSE INCREASED [None]
  - DRUG INEFFECTIVE [None]
